FAERS Safety Report 8339598-X (Version None)
Quarter: 2012Q2

REPORT INFORMATION
  Report Type: 
  Country: None (occurrence: None)
  Receive Date: 20120507
  Receipt Date: 20120502
  Transmission Date: 20120825
  Serious: Yes (Death, Hospitalization)
  Sender: FDA-Public Use
  Company Number: PHEH2012US009459

PATIENT
  Sex: Female

DRUGS (1)
  1. DIOVAN [Suspect]
     Dosage: 160 MG, BID

REACTIONS (6)
  - LOSS OF CONSCIOUSNESS [None]
  - DYSSTASIA [None]
  - ASTHENIA [None]
  - DEATH [None]
  - VISUAL IMPAIRMENT [None]
  - BLOOD GLUCOSE ABNORMAL [None]
